FAERS Safety Report 13732666 (Version 1)
Quarter: 2017Q3

REPORT INFORMATION
  Report Type: Spontaneous
  Country: PL (occurrence: PL)
  Receive Date: 20170707
  Receipt Date: 20170707
  Transmission Date: 20171127
  Serious: Yes (Other)
  Sender: FDA-Public Use
  Company Number: PHHY2017PL093905

PATIENT
  Age: 21 Year
  Sex: Male
  Weight: 98 kg

DRUGS (1)
  1. EDICIN [Suspect]
     Active Substance: VANCOMYCIN HYDROCHLORIDE
     Indication: PLEURAL DISORDER
     Dosage: 1 G, BID
     Route: 042

REACTIONS (1)
  - Hypersensitivity [Recovered/Resolved]

NARRATIVE: CASE EVENT DATE: 20161117
